FAERS Safety Report 23201135 (Version 1)
Quarter: 2023Q4

REPORT INFORMATION
  Report Type: Report from Study
  Country: IT (occurrence: IT)
  Receive Date: 20231118
  Receipt Date: 20231118
  Transmission Date: 20240110
  Serious: Yes (Other)
  Sender: FDA-Public Use
  Company Number: None

PATIENT
  Age: 9 Month
  Sex: Female
  Weight: 9 kg

DRUGS (7)
  1. METHOTREXATE (METHOTREXATE SODIUM) [Suspect]
     Active Substance: METHOTREXATE SODIUM
     Indication: Atypical teratoid/rhabdoid tumour of CNS
     Dates: start: 20230927, end: 20231006
  2. IFOSFAMIDE [Suspect]
     Active Substance: IFOSFAMIDE
     Indication: Atypical teratoid/rhabdoid tumour of CNS
     Dosage: 590 MILLIGRAM DAILY; 590 MG/DAY
     Dates: start: 20231010, end: 20231012
  3. ETOPOSIDE [Suspect]
     Active Substance: ETOPOSIDE
     Indication: Atypical teratoid/rhabdoid tumour of CNS
     Dates: start: 20231010, end: 20231012
  4. DECADRON [Concomitant]
     Active Substance: DEXAMETHASONE
     Indication: Product used for unknown indication
     Dates: start: 20230922, end: 20231002
  5. DECADRON [Concomitant]
     Active Substance: DEXAMETHASONE
     Dates: start: 20230913, end: 20230922
  6. FILGRASTIM [Concomitant]
     Active Substance: FILGRASTIM
     Indication: Haematopoietic stem cell mobilisation
     Dosage: 45 MCG/DAY IV FROM 09/29 TO 10/02/23?90 MCG/DAY IV FROM 10/12
     Route: 042
     Dates: start: 20230929
  7. CORTISONE ACETATE [Concomitant]
     Active Substance: CORTISONE ACETATE
     Indication: Hormone replacement therapy
     Dates: start: 20230920

REACTIONS (7)
  - Neutropenia [Not Recovered/Not Resolved]
  - Anaemia [Recovering/Resolving]
  - Klebsiella infection [Recovered/Resolved]
  - Alanine aminotransferase increased [Recovering/Resolving]
  - Leukopenia [Not Recovered/Not Resolved]
  - Vomiting [Recovered/Resolved]
  - Stomatitis [Recovered/Resolved]

NARRATIVE: CASE EVENT DATE: 20231002
